FAERS Safety Report 8862763 (Version 1)
Quarter: 2012Q4

REPORT INFORMATION
  Report Type: 
  Country: US (occurrence: US)
  Receive Date: 20121026
  Receipt Date: 20121026
  Transmission Date: 20130627
  Serious: No
  Sender: FDA-Public Use
  Company Number: US-ALLERGAN-1210656US

PATIENT
  Sex: Female

DRUGS (2)
  1. ALPHAGAN P [Suspect]
     Indication: RAISED IOP
     Dosage: 2 Gtt, bid
     Route: 047
  2. ALPHAGAN  P [Suspect]
     Dosage: 2 Gtt, bid
     Route: 047
     Dates: start: 201206

REACTIONS (4)
  - Incorrect dose administered [Unknown]
  - Eye swelling [Recovered/Resolved]
  - Eye pruritus [Recovered/Resolved]
  - Ocular hyperaemia [Not Recovered/Not Resolved]
